FAERS Safety Report 6694305-1 (Version None)
Quarter: 2010Q2

REPORT INFORMATION
  Report Type: 
  Country: None (occurrence: None)
  Receive Date: 20100423
  Receipt Date: 20100414
  Transmission Date: 20101027
  Serious: Yes (Life-Threatening, Hospitalization, Other)
  Sender: FDA-Public Use
  Company Number: GR-ABBOTT-10P-066-0636378-02

PATIENT
  Sex: Male
  Weight: 45 kg

DRUGS (3)
  1. HUMIRA [Suspect]
     Indication: CROHN'S DISEASE
     Route: 058
     Dates: start: 20071107, end: 20091220
  2. CIPROXIN [Concomitant]
     Indication: ANAL ABSCESS
     Dates: start: 20100102, end: 20100112
  3. FLAGYL [Concomitant]
     Indication: ANAL ABSCESS
     Dates: start: 20100102, end: 20100112

REACTIONS (1)
  - TESTIS CANCER [None]
